FAERS Safety Report 19054453 (Version 1)
Quarter: 2021Q1

REPORT INFORMATION
  Report Type: Report from Study
  Country: BE (occurrence: BE)
  Receive Date: 20210325
  Receipt Date: 20210325
  Transmission Date: 20210420
  Serious: Yes (Other)
  Sender: FDA-Public Use
  Company Number: BE-TEVA-2021-BE-1894255

PATIENT
  Age: 46 Year
  Sex: Female

DRUGS (1)
  1. COPAXONE [Suspect]
     Active Substance: GLATIRAMER ACETATE
     Indication: MULTIPLE SCLEROSIS
     Route: 065
     Dates: start: 20210305, end: 20210315

REACTIONS (6)
  - Influenza like illness [Unknown]
  - Chills [Unknown]
  - Dyspepsia [Unknown]
  - Nausea [Unknown]
  - Delirium [Unknown]
  - Pain [Unknown]

NARRATIVE: CASE EVENT DATE: 20210315
